FAERS Safety Report 9233468 (Version 1)
Quarter: 2013Q2

REPORT INFORMATION
  Report Type: Spontaneous
  Country: FR (occurrence: FR)
  Receive Date: 20130416
  Receipt Date: 20130416
  Transmission Date: 20140414
  Serious: Yes (Hospitalization)
  Sender: FDA-Public Use
  Company Number: FR-PFIZER INC-2013115726

PATIENT
  Age: 81 Year
  Sex: Female

DRUGS (12)
  1. TAZOCILLINE [Suspect]
     Indication: DEVICE RELATED INFECTION
     Dosage: 4 G, 3X/DAY
     Route: 042
     Dates: start: 20121207, end: 20130212
  2. COLIMYCINE [Suspect]
     Indication: DEVICE RELATED INFECTION
     Dosage: 1 MILLIONIU, 2X/DAY
     Route: 042
     Dates: start: 20121207, end: 20130212
  3. ZOPHREN [Suspect]
     Dosage: 4 MG, 2X/DAY
     Route: 048
     Dates: start: 20130206, end: 20130212
  4. FUMAFER [Suspect]
     Dosage: 66 MG, 2X/DAY
     Dates: start: 20130208, end: 20130212
  5. FOLIC ACID [Suspect]
     Dosage: 5 MG, 2X/DAY
     Route: 048
     Dates: start: 20130208, end: 20130212
  6. ULTRA LEVURA [Suspect]
     Dosage: UNK
     Route: 048
     Dates: start: 20130208, end: 20130212
  7. SPASFON-LYOC [Suspect]
     Dosage: 80 MG, 3X/DAY
     Route: 048
     Dates: start: 20130210, end: 20130212
  8. IMOVANE [Suspect]
     Dosage: UNK
     Route: 048
     Dates: start: 20130210, end: 20130212
  9. KARDEGIC [Concomitant]
     Dosage: UNK
     Dates: start: 201211
  10. FORTZAAR [Concomitant]
     Dosage: UNK
     Dates: start: 201211
  11. PROPRANOLOL [Concomitant]
     Dosage: UNK
     Dates: start: 201211
  12. PRAVASTATIN [Concomitant]
     Dosage: UNK
     Dates: start: 201211

REACTIONS (3)
  - Eczema [Recovered/Resolved]
  - Eosinophilia [Unknown]
  - Rash maculo-papular [Unknown]
